FAERS Safety Report 18394698 (Version 1)
Quarter: 2020Q4

REPORT INFORMATION
  Report Type: Spontaneous
  Country: IT (occurrence: IT)
  Receive Date: 20201017
  Receipt Date: 20201017
  Transmission Date: 20210114
  Serious: Yes (Other)
  Sender: FDA-Public Use
  Company Number: NVSC2020IT278250

PATIENT
  Age: 36 Year
  Sex: Female

DRUGS (1)
  1. LIDOCAINE HYDROCHLORIDE. [Suspect]
     Active Substance: LIDOCAINE HYDROCHLORIDE
     Indication: LOCAL ANAESTHESIA
     Dosage: 200 MG, OT
     Route: 058
     Dates: start: 20200925, end: 20200925

REACTIONS (5)
  - Skin reaction [Recovering/Resolving]
  - Skin oedema [Recovering/Resolving]
  - Presyncope [Recovering/Resolving]
  - Loss of consciousness [Recovering/Resolving]
  - Hypersensitivity [Recovering/Resolving]

NARRATIVE: CASE EVENT DATE: 20200925
